FAERS Safety Report 18659452 (Version 1)
Quarter: 2020Q4

REPORT INFORMATION
  Report Type: Spontaneous
  Country: US (occurrence: US)
  Receive Date: 20201224
  Receipt Date: 20201224
  Transmission Date: 20210114
  Serious: No
  Sender: FDA-Public Use
  Company Number: US-BAYER-2020-284785

PATIENT
  Age: 30 Month
  Sex: Female

DRUGS (1)
  1. CLARITIN [Suspect]
     Active Substance: LORATADINE
     Dosage: 10 ML
     Route: 048
     Dates: start: 20201222, end: 20201222

REACTIONS (1)
  - Extra dose administered [Unknown]
